FAERS Safety Report 12589783 (Version 2)
Quarter: 2016Q3

REPORT INFORMATION
  Report Type: Report from Study
  Country: US (occurrence: US)
  Receive Date: 20160725
  Receipt Date: 20160817
  Transmission Date: 20161109
  Serious: Yes (Death, Other)
  Sender: FDA-Public Use
  Company Number: US-ACTELION-A-US2016-139501

PATIENT
  Age: 63 Year
  Sex: Female

DRUGS (3)
  1. REMODULIN [Concomitant]
     Active Substance: TREPROSTINIL
  2. RIOCIGUAT [Concomitant]
     Active Substance: RIOCIGUAT
  3. TRACLEER [Suspect]
     Active Substance: BOSENTAN
     Indication: PULMONARY ARTERIAL HYPERTENSION
     Dosage: 125 MG, BID
     Route: 048
     Dates: start: 20040820, end: 20160702

REACTIONS (3)
  - Pneumonia [Unknown]
  - Septic shock [Fatal]
  - Biliary tract disorder [Unknown]
